FAERS Safety Report 20090991 (Version 1)
Quarter: 2021Q4

REPORT INFORMATION
  Report Type: Spontaneous
  Country: US (occurrence: None)
  Receive Date: 20211118
  Receipt Date: 20211118
  Transmission Date: 20220303
  Serious: No
  Sender: FDA-Public Use
  Company Number: None

PATIENT
  Age: 5 Year
  Sex: Male
  Weight: 16.33 kg

DRUGS (1)
  1. ILARIS [Suspect]
     Active Substance: CANAKINUMAB

REACTIONS (6)
  - Nausea [None]
  - Vomiting [None]
  - Diarrhoea [None]
  - Arthralgia [None]
  - Malaise [None]
  - Hypophagia [None]

NARRATIVE: CASE EVENT DATE: 20211112
